FAERS Safety Report 15395561 (Version 1)
Quarter: 2018Q3

REPORT INFORMATION
  Report Type: Spontaneous
  Country: US (occurrence: US)
  Receive Date: 20180912
  Receipt Date: 20180912
  Transmission Date: 20181010
  Serious: Yes (Other)
  Sender: FDA-Public Use
  Company Number: None

PATIENT
  Age: 1 Day
  Sex: Male
  Weight: .45 kg

DRUGS (1)
  1. GLUCOSE TABLETS [Suspect]
     Active Substance: DEXTROSE
     Route: 048
     Dates: start: 20180912, end: 20180912

REACTIONS (1)
  - Product expiration date issue [None]

NARRATIVE: CASE EVENT DATE: 20180912
